FAERS Safety Report 17974121 (Version 1)
Quarter: 2020Q3

REPORT INFORMATION
  Report Type: Spontaneous
  Country: US (occurrence: US)
  Receive Date: 20200702
  Receipt Date: 20200702
  Transmission Date: 20201103
  Serious: Yes (Death, Hospitalization, Disabling, Other)
  Sender: FDA-Public Use
  Company Number: None

PATIENT
  Age: 67 Year
  Sex: Female
  Weight: 53.5 kg

DRUGS (10)
  1. VITAMIN C [Suspect]
     Active Substance: ASCORBIC ACID
     Indication: ADENOCARCINOMA GASTRIC
     Dosage: ?          OTHER FREQUENCY:2?3X/WEEK;?
     Route: 042
     Dates: start: 20200602, end: 20200611
  2. SQ MISTLE TOE INJECTIONS [Concomitant]
  3. DEXAMETHASONE. [Concomitant]
     Active Substance: DEXAMETHASONE
     Dates: start: 20200605
  4. FLUOROURACIL. [Concomitant]
     Active Substance: FLUOROURACIL
     Dates: start: 20200605, end: 20200605
  5. ONDANSETRON [Concomitant]
     Active Substance: ONDANSETRON
     Dates: start: 20200605
  6. MAGNESIUM CHLORIDE. [Concomitant]
     Active Substance: MAGNESIUM CHLORIDE
     Dates: start: 20200602, end: 20200611
  7. LEUCOVORIN. [Concomitant]
     Active Substance: LEUCOVORIN
     Dates: start: 20200605, end: 20200605
  8. POTASSIUM CHLORIDE. [Concomitant]
     Active Substance: POTASSIUM CHLORIDE
     Dates: start: 20200602, end: 20200611
  9. OXALIPLATIN. [Concomitant]
     Active Substance: OXALIPLATIN
     Dates: start: 20200605, end: 20200605
  10. COREG [Concomitant]
     Active Substance: CARVEDILOL

REACTIONS (3)
  - Atrioventricular block complete [None]
  - Acute kidney injury [None]
  - Renal artery stent placement [None]

NARRATIVE: CASE EVENT DATE: 20200612
